FAERS Safety Report 8433514-8 (Version None)
Quarter: 2012Q2

REPORT INFORMATION
  Report Type: 
  Country: None (occurrence: None)
  Receive Date: 20120613
  Receipt Date: 20120530
  Transmission Date: 20120825
  Serious: Yes (Hospitalization, Other)
  Sender: FDA-Public Use
  Company Number: US-MYLANLABS-2009AC000280

PATIENT
  Sex: Male
  Weight: 69.4 kg

DRUGS (30)
  1. LISINOPRIL [Concomitant]
  2. PERCOCET [Concomitant]
  3. MIDAZOLAM [Concomitant]
  4. ZOFRAN [Concomitant]
  5. ATENOLOL [Concomitant]
  6. NAPROXEN (ALEVE) [Concomitant]
  7. POTASSIUM CHLORIDE [Concomitant]
  8. FENTANYL [Concomitant]
  9. DIGIBIND [Concomitant]
  10. ALLOPURINOL [Concomitant]
  11. CLONIDINE [Concomitant]
  12. NITROGLYCERIN [Concomitant]
  13. TOPROL-XL [Concomitant]
  14. LEVOFLOXACIN [Concomitant]
  15. LASIX [Concomitant]
  16. HYDROCHLOROTHIAZIDE [Concomitant]
  17. CENTRUM /02712901/ [Concomitant]
  18. TENORMIN [Concomitant]
  19. MORPHINE [Concomitant]
  20. LEVAQUIN [Concomitant]
  21. SODIUM NITROPRUSSIDE [Concomitant]
  22. DILTIAZEM [Concomitant]
  23. AMIODARONE HCL [Concomitant]
  24. FUROSEMIDE [Concomitant]
  25. FERROUS SULFATE TAB [Concomitant]
  26. DIGOXIN [Suspect]
     Indication: PRODUCT USED FOR UNKNOWN INDICATION
     Route: 048
     Dates: start: 20061216, end: 20070103
  27. SYNTHROID [Concomitant]
  28. MUCINEX [Concomitant]
  29. ALTACE [Concomitant]
  30. NORVASC [Concomitant]

REACTIONS (69)
  - INJURY [None]
  - ALCOHOL ABUSE [None]
  - FLATULENCE [None]
  - RECTAL HAEMORRHAGE [None]
  - PLEURITIC PAIN [None]
  - PAIN IN EXTREMITY [None]
  - ARTHRALGIA [None]
  - HYPOKALAEMIA [None]
  - LEFT VENTRICULAR HYPERTROPHY [None]
  - CARDIAC PACEMAKER INSERTION [None]
  - CARDIOMYOPATHY [None]
  - OEDEMA PERIPHERAL [None]
  - ARTERIOSCLEROSIS [None]
  - LYMPHADENOPATHY [None]
  - CONSTIPATION [None]
  - ECONOMIC PROBLEM [None]
  - PYREXIA [None]
  - PRODUCTIVE COUGH [None]
  - DIVERTICULUM [None]
  - PLEURAL EFFUSION [None]
  - EMPHYSEMA [None]
  - ATELECTASIS [None]
  - LUNG CONSOLIDATION [None]
  - CHEST PAIN [None]
  - WEIGHT DECREASED [None]
  - IRON DEFICIENCY ANAEMIA [None]
  - LUNG NEOPLASM MALIGNANT [None]
  - CARDIAC MURMUR [None]
  - MALAISE [None]
  - ELECTROCARDIOGRAM ABNORMAL [None]
  - PNEUMONIA [None]
  - JUGULAR VEIN DISTENSION [None]
  - CORONARY ARTERY DISEASE [None]
  - CHILLS [None]
  - DYSPNOEA [None]
  - HAEMORRHOIDS [None]
  - RENAL FAILURE CHRONIC [None]
  - ASTHENIA [None]
  - PANCREATITIS [None]
  - CARDIAC VALVE DISEASE [None]
  - HAEMATOCHEZIA [None]
  - BRONCHITIS [None]
  - BREATH SOUNDS ABNORMAL [None]
  - DILATATION ATRIAL [None]
  - ILL-DEFINED DISORDER [None]
  - HYPERTENSION [None]
  - NODAL ARRHYTHMIA [None]
  - TOBACCO ABUSE [None]
  - CATHETERISATION CARDIAC [None]
  - COUGH [None]
  - ABDOMINAL PAIN [None]
  - PULMONARY MASS [None]
  - LEFT VENTRICULAR DYSFUNCTION [None]
  - SINUS ARRHYTHMIA [None]
  - TUMOUR MARKER INCREASED [None]
  - DIVERTICULITIS [None]
  - PURULENT DISCHARGE [None]
  - DECREASED APPETITE [None]
  - SYNCOPE [None]
  - BRADYCARDIA [None]
  - CARDIOMEGALY [None]
  - COLONOSCOPY [None]
  - CARDIAC FAILURE CONGESTIVE [None]
  - TOXICITY TO VARIOUS AGENTS [None]
  - PRESYNCOPE [None]
  - ABDOMINAL DISTENSION [None]
  - HELICOBACTER INFECTION [None]
  - IRRITABLE BOWEL SYNDROME [None]
  - INFLAMMATION [None]
